FAERS Safety Report 9978864 (Version 2)
Quarter: 2015Q1

REPORT INFORMATION
  Report Type: Report from Study
  Country: US (occurrence: US)
  Receive Date: 20140306
  Receipt Date: 20150216
  Transmission Date: 20150721
  Serious: No
  Sender: FDA-Public Use
  Company Number: US-ABBVIE-13P-163-1169310-00

PATIENT
  Age: 40 Year
  Sex: Female
  Weight: 70.37 kg

DRUGS (2)
  1. HUMIRA [Suspect]
     Active Substance: ADALIMUMAB
     Indication: RHEUMATOID ARTHRITIS
     Route: 058
     Dates: start: 201308
  2. HUMIRA [Suspect]
     Active Substance: ADALIMUMAB
     Route: 065
     Dates: start: 201406

REACTIONS (10)
  - Contusion [Unknown]
  - Injection site bruising [Unknown]
  - Erythema [Unknown]
  - Injection site swelling [Not Recovered/Not Resolved]
  - Injection site erythema [Unknown]
  - Injection site erythema [Not Recovered/Not Resolved]
  - Pruritus [Unknown]
  - Injection site pruritus [Not Recovered/Not Resolved]
  - Injection site pruritus [Unknown]
  - Device issue [Unknown]

NARRATIVE: CASE EVENT DATE: 201308
